FAERS Safety Report 12577624 (Version 4)
Quarter: 2017Q1

REPORT INFORMATION
  Report Type: Report from Study
  Country: US (occurrence: US)
  Receive Date: 20160720
  Receipt Date: 20170124
  Transmission Date: 20170428
  Serious: Yes (Other)
  Sender: FDA-Public Use
  Company Number: PHHY2016US051721

PATIENT
  Age: 23 Year
  Sex: Female

DRUGS (2)
  1. RITALIN [Concomitant]
     Active Substance: METHYLPHENIDATE HYDROCHLORIDE
     Indication: FATIGUE
     Dosage: UNK
     Route: 065
     Dates: start: 20151203
  2. GILENYA [Suspect]
     Active Substance: FINGOLIMOD HYDROCHLORIDE
     Indication: MULTIPLE SCLEROSIS
     Dosage: QD
     Route: 048

REACTIONS (12)
  - Postoperative wound infection [Unknown]
  - Radius fracture [Unknown]
  - Upper limb fracture [Unknown]
  - Muscle twitching [Not Recovered/Not Resolved]
  - Hypoaesthesia [Not Recovered/Not Resolved]
  - Muscle strain [Recovered/Resolved]
  - Productive cough [Recovered/Resolved]
  - Muscle spasms [Recovered/Resolved]
  - Pain in extremity [Not Recovered/Not Resolved]
  - Hypoaesthesia [Recovered/Resolved]
  - Lhermitte^s sign [Unknown]
  - Paraesthesia [Unknown]

NARRATIVE: CASE EVENT DATE: 20151026
